FAERS Safety Report 24357592 (Version 2)
Quarter: 2024Q4

REPORT INFORMATION
  Report Type: Spontaneous
  Country: US (occurrence: US)
  Receive Date: 20240924
  Receipt Date: 20241015
  Transmission Date: 20250115
  Serious: Yes (Hospitalization)
  Sender: BAYER HEALTHCARE PHARMACEUTICALS INC.
  Company Number: US-BAYER-2024A132979

PATIENT
  Age: 55 Year
  Sex: Female
  Weight: 122.45 kg

DRUGS (15)
  1. ADEMPAS [Suspect]
     Active Substance: RIOCIGUAT
     Dosage: UNK
     Dates: start: 20240910
  2. ADEMPAS [Suspect]
     Active Substance: RIOCIGUAT
     Dosage: 1 MG, TID
     Route: 048
  3. ORENITRAM [Concomitant]
     Active Substance: TREPROSTINIL
     Indication: Pulmonary arterial hypertension
     Dosage: 3 MG, TID
     Route: 048
     Dates: start: 20200331
  4. LETAIRIS [Concomitant]
     Active Substance: AMBRISENTAN
  5. SIMVASTATIN [Concomitant]
     Active Substance: SIMVASTATIN
  6. POTASSIUM CHLORIDE [Concomitant]
     Active Substance: POTASSIUM CHLORIDE
  7. LASIX [Concomitant]
     Active Substance: FUROSEMIDE
  8. VITAMIN D2 [Concomitant]
     Active Substance: ERGOCALCIFEROL
  9. HUMULIN N [Concomitant]
     Active Substance: INSULIN HUMAN
  10. GLIPIZIDE [Concomitant]
     Active Substance: GLIPIZIDE
  11. OXYGEN [Concomitant]
     Active Substance: OXYGEN
  12. BUMETANIDE [Concomitant]
     Active Substance: BUMETANIDE
  13. COZAAR [Concomitant]
     Active Substance: LOSARTAN POTASSIUM
  14. ASPIRIN [Concomitant]
     Active Substance: ASPIRIN
  15. FERROUS SULFATE [Concomitant]
     Active Substance: FERROUS SULFATE

REACTIONS (4)
  - Lung disorder [None]
  - Oedema [None]
  - Product dose omission issue [None]
  - Product supply issue [None]

NARRATIVE: CASE EVENT DATE: 20240930
